FAERS Safety Report 21010589 (Version 2)
Quarter: 2022Q2

REPORT INFORMATION
  Report Type: Spontaneous
  Country: US (occurrence: US)
  Receive Date: 20220627
  Receipt Date: 20220630
  Transmission Date: 20220721
  Serious: No
  Sender: FDA-Public Use
  Company Number: US-Neopharm Limited-SP-US-2022-001873

PATIENT
  Age: 70 Year
  Sex: Male

DRUGS (1)
  1. AYVAKIT [Suspect]
     Active Substance: AVAPRITINIB
     Indication: Systemic mastocytosis
     Route: 048
     Dates: start: 20220408

REACTIONS (3)
  - Skin lesion [Recovering/Resolving]
  - Platelet count increased [Not Recovered/Not Resolved]
  - Tryptase decreased [Not Recovered/Not Resolved]
